FAERS Safety Report 6263124-2 (Version None)
Quarter: 2009Q3

REPORT INFORMATION
  Report Type: 
  Country: None (occurrence: None)
  Receive Date: 20090710
  Receipt Date: 20090630
  Transmission Date: 20100115
  Serious: Yes (Other)
  Sender: FDA-Public Use
  Company Number: US-JNJFOC-20090701317

PATIENT
  Sex: Female
  Weight: 55.34 kg

DRUGS (6)
  1. EXTRA STRENGTH TYLENOL [Suspect]
     Route: 048
  2. EXTRA STRENGTH TYLENOL [Suspect]
     Indication: BACK PAIN
     Dosage: 1000 MG 4 TIMES DAILY AS NEEDED
     Route: 048
  3. TYLENOL (CAPLET) [Suspect]
     Dosage: 650MG FOUR TIMES AS DAILY, AS NEEDED, FOR 20 YEARS
     Route: 048
  4. TYLENOL (CAPLET) [Suspect]
     Indication: DYSMENORRHOEA
     Dosage: 1950 MG TWICE DAILY AS NEEDED, FOR 20 YEARS
     Route: 048
  5. PEGASYS [Concomitant]
     Indication: HEPATITIS C
     Dosage: AS DIRECTED, FOR YEARS
  6. CHEMOTHERAPY [Concomitant]
     Indication: HEPATITIS C
     Dosage: AS DIRECTED, FOR YEARS

REACTIONS (4)
  - HEPATIC CIRRHOSIS [None]
  - HEPATITIS C [None]
  - LIVER INJURY [None]
  - PORTAL HYPERTENSION [None]
